FAERS Safety Report 6415265-4 (Version None)
Quarter: 2009Q4

REPORT INFORMATION
  Report Type: 
  Country: None (occurrence: None)
  Receive Date: 20091027
  Receipt Date: 20091019
  Transmission Date: 20100525
  Serious: No
  Sender: FDA-Public Use
  Company Number: US-B.I. PHARMACEUTICALS,INC./RIDGEFIELD-2009-BP-11377BP

PATIENT
  Sex: Female

DRUGS (26)
  1. SPIRIVA [Suspect]
     Indication: CHRONIC OBSTRUCTIVE PULMONARY DISEASE
     Dosage: 18 MCG
     Route: 055
     Dates: start: 20090921, end: 20090927
  2. FUROSEMIDE [Concomitant]
  3. XANAX [Concomitant]
  4. ASPIRIN [Concomitant]
  5. LOTENSIN [Concomitant]
  6. PLAVIX [Concomitant]
  7. SYNTHROID [Concomitant]
  8. HYDROCODONE [Concomitant]
  9. ECHINACEA ROOT [Concomitant]
  10. PROBIOTIC [Concomitant]
  11. LOVAZA [Concomitant]
  12. CALCIUM/MAG [Concomitant]
  13. VITAMIN D [Concomitant]
  14. D3 [Concomitant]
  15. VITAMIN B COMPLEX CAP [Concomitant]
  16. GARLIC PEARLS [Concomitant]
  17. ASCORBIC ACID [Concomitant]
  18. MULTI-VITAMIN [Concomitant]
  19. NORVASC [Concomitant]
  20. ALBUTEROL [Concomitant]
  21. COMBIVENT [Concomitant]
  22. PROAIR HFA [Concomitant]
  23. CLOTRIMAZOLE [Concomitant]
  24. TRIMCINOLONE ACETONIDE [Concomitant]
  25. INHALERS [Concomitant]
  26. BREATHING MACHINE [Concomitant]

REACTIONS (4)
  - DECREASED APPETITE [None]
  - DEPRESSION [None]
  - FATIGUE [None]
  - PRODUCTIVE COUGH [None]
